FAERS Safety Report 21337038 (Version 1)
Quarter: 2022Q3

REPORT INFORMATION
  Report Type: Other
  Country: CN (occurrence: None)
  Receive Date: 20220915
  Receipt Date: 20220915
  Transmission Date: 20221027
  Serious: Yes (Other)
  Sender: FDA-Public Use
  Company Number: CN-ROCHE-3176696

PATIENT
  Sex: Female

DRUGS (20)
  1. CAPECITABINE [Suspect]
     Active Substance: CAPECITABINE
     Indication: Metastases to lymph nodes
     Dosage: FIRST-LINE CHEMOTHERAPY WAS INITIATED WITH SIX CYCLES
     Route: 065
     Dates: start: 201206, end: 201212
  2. CAPECITABINE [Suspect]
     Active Substance: CAPECITABINE
     Dosage: SIX CYCLES
     Route: 065
     Dates: start: 201605, end: 201609
  3. CAPECITABINE [Suspect]
     Active Substance: CAPECITABINE
     Dosage: MAINTENANCE THERAPY
     Route: 065
     Dates: end: 201802
  4. FULVESTRANT [Suspect]
     Active Substance: FULVESTRANT
     Indication: Metastases to liver
     Route: 065
     Dates: start: 201601
  5. FULVESTRANT [Suspect]
     Active Substance: FULVESTRANT
     Route: 065
     Dates: end: 201912
  6. BEVACIZUMAB [Suspect]
     Active Substance: BEVACIZUMAB
     Indication: Metastases to central nervous system
     Route: 065
  7. GEMCITABINE [Suspect]
     Active Substance: GEMCITABINE
     Indication: Metastases to central nervous system
     Route: 065
     Dates: start: 202207
  8. CYCLOPHOSPHAMIDE [Concomitant]
     Active Substance: CYCLOPHOSPHAMIDE
     Indication: HER2 negative breast cancer
     Dosage: 5 CYCLES
     Route: 065
  9. CYCLOPHOSPHAMIDE [Concomitant]
     Active Substance: CYCLOPHOSPHAMIDE
     Indication: Metastases to lymph nodes
     Dosage: THIRD LINE THERAPY
     Route: 048
     Dates: end: 201808
  10. METHOTREXATE [Concomitant]
     Active Substance: METHOTREXATE
     Indication: Metastases to lymph nodes
     Dosage: THIRD LINE THERAPY
     Route: 048
     Dates: end: 201808
  11. ETOPOSIDE [Concomitant]
     Active Substance: ETOPOSIDE
  12. MEGESTROL [Concomitant]
     Active Substance: MEGESTROL
  13. PALBOCICLIB [Concomitant]
     Active Substance: PALBOCICLIB
     Dates: end: 201912
  14. VINORELBINE [Concomitant]
     Active Substance: VINORELBINE TARTRATE
     Dosage: FIFTH LINE CHEMOTHERAPY
  15. APATINIB [Concomitant]
     Active Substance: APATINIB
     Dosage: FIFTH-SIXTH -LINE CHEMOTHERAPY
  16. CISPLATIN [Concomitant]
     Active Substance: CISPLATIN
  17. PACLITAXEL [Concomitant]
     Active Substance: PACLITAXEL
     Dosage: SIXTH-LINE CHEMOTHERAPY WITH SIX CYCLES
  18. APATINIB [Concomitant]
     Active Substance: APATINIB
     Dosage: SIXTH-LINE CHEMOTHERAPY WITH SIX CYCLES
  19. ERIBULIN MESYLATE [Concomitant]
     Active Substance: ERIBULIN MESYLATE
     Dosage: ON DAYS 1 AND 8 OF A 21-DAY CYCLE ?EIGHTH-LINE CHEMOTHERAPY
  20. ERIBULIN MESYLATE [Concomitant]
     Active Substance: ERIBULIN MESYLATE
     Dates: start: 20200904

REACTIONS (4)
  - Metastases to peritoneum [Unknown]
  - Metastases to pleura [Unknown]
  - Ascites [Unknown]
  - Peritoneal lesion [Not Recovered/Not Resolved]

NARRATIVE: CASE EVENT DATE: 20180201
